FAERS Safety Report 22075907 (Version 1)
Quarter: 2023Q1

REPORT INFORMATION
  Report Type: Spontaneous
  Country: US (occurrence: US)
  Receive Date: 20230308
  Receipt Date: 20230308
  Transmission Date: 20230417
  Serious: Yes (Death, Other)
  Sender: FDA-Public Use
  Company Number: US-BRISTOL-MYERS SQUIBB COMPANY-2023-033856

PATIENT
  Age: 80 Year
  Sex: Male

DRUGS (8)
  1. OPDIVO [Suspect]
     Active Substance: NIVOLUMAB
     Indication: Gallbladder cancer
     Dosage: DOSE : OPDIVO 267 MG, YERVOY 90 MG;     FREQ : OPDIVO 267 MG EVERY 3 WEEKS, YERVOY 90 MG EVERY 2 WEE
  2. YERVOY [Suspect]
     Active Substance: IPILIMUMAB
     Indication: Gallbladder cancer
     Dosage: DOSE : OPDIVO 267 MG, YERVOY 90 MG;     FREQ : OPDIVO 267 MG EVERY 3 WEEKS, YERVOY 90 MG EVERY 2 WEE
  3. LOSARTAN [Concomitant]
     Active Substance: LOSARTAN
     Indication: Product used for unknown indication
  4. METOPROLOL [Concomitant]
     Active Substance: METOPROLOL
     Indication: Product used for unknown indication
  5. JARDIANCE [Concomitant]
     Active Substance: EMPAGLIFLOZIN
     Indication: Product used for unknown indication
  6. XARELTO [Concomitant]
     Active Substance: RIVAROXABAN
     Indication: Product used for unknown indication
  7. PRALUENT [Concomitant]
     Active Substance: ALIROCUMAB
     Indication: Product used for unknown indication
  8. REPAGLINIDE [Concomitant]
     Active Substance: REPAGLINIDE
     Indication: Product used for unknown indication

REACTIONS (2)
  - Death [Fatal]
  - Off label use [Unknown]

NARRATIVE: CASE EVENT DATE: 20230228
